FAERS Safety Report 24372558 (Version 4)
Quarter: 2025Q2

REPORT INFORMATION
  Report Type: Report from Study
  Country: CA (occurrence: CA)
  Receive Date: 20240927
  Receipt Date: 20250404
  Transmission Date: 20250716
  Serious: Yes (Other)
  Sender: BIOCON
  Company Number: CA-BIOCON BIOLOGICS LIMITED-2022M1013821

PATIENT

DRUGS (2)
  1. HULIO [Suspect]
     Active Substance: ADALIMUMAB-FKJP
     Indication: Crohn^s disease
     Route: 058
     Dates: start: 20220309
  2. HULIO [Suspect]
     Active Substance: ADALIMUMAB-FKJP
     Dosage: 40 MG, QWEEK
     Route: 058
     Dates: start: 20220309

REACTIONS (4)
  - Inflammatory bowel disease [Unknown]
  - Faecal calprotectin increased [Unknown]
  - Abdominal pain [Unknown]
  - Off label use [Unknown]
